FAERS Safety Report 5490882-7 (Version None)
Quarter: 2007Q4

REPORT INFORMATION
  Report Type: 
  Country: None (occurrence: None)
  Receive Date: 20071019
  Receipt Date: 20071011
  Transmission Date: 20080405
  Serious: Yes (Life-Threatening)
  Sender: FDA-Public Use
  Company Number: JP-TYCO HEALTHCARE/MALLINCKRODT-T200701241

PATIENT

DRUGS (1)
  1. OPTIRAY 300 [Suspect]
     Indication: COMPUTERISED TOMOGRAM ABDOMEN
     Dosage: 100 ML, SINGLE
     Route: 042
     Dates: start: 20071011, end: 20071011

REACTIONS (1)
  - SHOCK [None]
